APPROVED DRUG PRODUCT: NYSTATIN
Active Ingredient: NYSTATIN
Strength: 100,000 UNITS/ML
Dosage Form/Route: SUSPENSION;ORAL
Application: A062349 | Product #001
Applicant: G AND W LABORATORIES INC
Approved: Jul 14, 1982 | RLD: No | RS: No | Type: DISCN